FAERS Safety Report 16622260 (Version 1)
Quarter: 2019Q3

REPORT INFORMATION
  Report Type: Report from Study
  Country: None (occurrence: US)
  Receive Date: 20190723
  Receipt Date: 20190723
  Transmission Date: 20191004
  Serious: Yes (Hospitalization)
  Sender: FDA-Public Use
  Company Number: US-ABBVIE-19K-163-2858796-00

PATIENT
  Age: 53 Year
  Sex: Male
  Weight: 79 kg

DRUGS (2)
  1. CREON [Suspect]
     Active Substance: PANCRELIPASE AMYLASE\PANCRELIPASE LIPASE\PANCRELIPASE PROTEASE
     Indication: PANCREATITIS CHRONIC
     Dosage: TWO CAPSULES PER MEAL
     Route: 048
     Dates: start: 2017
  2. CREON [Suspect]
     Active Substance: PANCRELIPASE AMYLASE\PANCRELIPASE LIPASE\PANCRELIPASE PROTEASE
     Dosage: THREE CAPSULES PER MEAL AND ONE PER SNACK IN BETWEEN MEALS
     Route: 048

REACTIONS (5)
  - Blood cholesterol increased [Unknown]
  - Pancreatitis chronic [Unknown]
  - Pain [Unknown]
  - Infection [Unknown]
  - Hypophagia [Unknown]

NARRATIVE: CASE EVENT DATE: 201907
